FAERS Safety Report 11082730 (Version 1)
Quarter: 2015Q2

REPORT INFORMATION
  Report Type: Spontaneous
  Country: US (occurrence: US)
  Receive Date: 20150501
  Receipt Date: 20150501
  Transmission Date: 20150821
  Serious: No
  Sender: FDA-Public Use
  Company Number: US-PFIZER INC-2015140582

PATIENT
  Age: 47 Year
  Sex: Female
  Weight: 58.96 kg

DRUGS (5)
  1. LISINOPRIL. [Concomitant]
     Active Substance: LISINOPRIL
     Dosage: UNK
  2. LYRICA [Suspect]
     Active Substance: PREGABALIN
     Indication: FIBROMYALGIA
     Dosage: UNK
     Dates: start: 201406
  3. LYRICA [Suspect]
     Active Substance: PREGABALIN
     Dosage: UNK (LOWERED DOSE)
  4. LYRICA [Suspect]
     Active Substance: PREGABALIN
     Dosage: 100 MG, 2X/DAY
  5. METFORMIN [Concomitant]
     Active Substance: METFORMIN HYDROCHLORIDE
     Dosage: UNK

REACTIONS (4)
  - Activities of daily living impaired [Unknown]
  - Euphoric mood [Unknown]
  - Drug effect incomplete [Unknown]
  - Intentional product misuse [Unknown]
